FAERS Safety Report 14347372 (Version 1)
Quarter: 2018Q1

REPORT INFORMATION
  Report Type: Spontaneous
  Country: US (occurrence: US)
  Receive Date: 20180103
  Receipt Date: 20180103
  Transmission Date: 20180509
  Serious: No
  Sender: FDA-Public Use
  Company Number: None

PATIENT
  Age: 54 Year
  Sex: Female
  Weight: 83.91 kg

DRUGS (2)
  1. LISINOPRIL. [Suspect]
     Active Substance: LISINOPRIL
     Indication: PROTEIN URINE
     Route: 048
     Dates: start: 20131011, end: 20131109
  2. WALKING CANE [Concomitant]

REACTIONS (6)
  - Musculoskeletal stiffness [None]
  - Burning sensation [None]
  - Pain [None]
  - Joint swelling [None]
  - Hypoaesthesia [None]
  - Peripheral swelling [None]

NARRATIVE: CASE EVENT DATE: 20131109
